FAERS Safety Report 25394560 (Version 3)
Quarter: 2025Q3

REPORT INFORMATION
  Report Type: Report from Study
  Country: CA (occurrence: CA)
  Receive Date: 20250604
  Receipt Date: 20250809
  Transmission Date: 20251021
  Serious: Yes (Other)
  Sender: ALEXION PHARMACEUTICALS
  Company Number: CA-AstraZeneca-CH-00881481A

PATIENT
  Sex: Male

DRUGS (7)
  1. SOLIRIS [Suspect]
     Active Substance: ECULIZUMAB
     Indication: Nephropathy
     Dosage: 900 MILLIGRAM, QW
     Dates: start: 20190507, end: 20190528
  2. SOLIRIS [Suspect]
     Active Substance: ECULIZUMAB
     Dosage: 1200 MILLIGRAM, Q2W
     Dates: start: 20190604, end: 20190909
  3. SOLIRIS [Suspect]
     Active Substance: ECULIZUMAB
     Dosage: 1200 MILLIGRAM, Q4W
     Dates: start: 20191012, end: 20200528
  4. SOLIRIS [Suspect]
     Active Substance: ECULIZUMAB
     Dosage: 1200 MILLIGRAM, Q8W
     Dates: start: 20200723, end: 20240614
  5. SOLIRIS [Suspect]
     Active Substance: ECULIZUMAB
     Dosage: 1200 MILLIGRAM, Q4W
     Dates: start: 20240712, end: 20250117
  6. SOLIRIS [Suspect]
     Active Substance: ECULIZUMAB
     Dates: start: 20250304, end: 20250304
  7. SOLIRIS [Suspect]
     Active Substance: ECULIZUMAB
     Dosage: 900 MILLIGRAM, QW
     Dates: start: 20250321

REACTIONS (2)
  - Transplant failure [Unknown]
  - Off label use [Unknown]
